FAERS Safety Report 8708108 (Version 2)
Quarter: 2013Q2

REPORT INFORMATION
  Report Type: Spontaneous
  Country: CA (occurrence: CA)
  Receive Date: 20120806
  Receipt Date: 20130422
  Transmission Date: 20140414
  Serious: Yes (Other)
  Sender: FDA-Public Use
  Company Number: CA-JNJFOC-20120406590

PATIENT
  Age: 51 Year
  Sex: Female
  Weight: 67 kg

DRUGS (2)
  1. REMICADE [Suspect]
     Indication: CROHN^S DISEASE
     Dosage: APPROXIMATELY 31 INFUSIONS RECEIVED IN TOTAL
     Route: 042
     Dates: start: 20081021
  2. IMURAN [Concomitant]
     Route: 065
     Dates: end: 20110301

REACTIONS (6)
  - Dental operation [Recovered/Resolved]
  - Gastrointestinal infection [Recovered/Resolved]
  - Hypersensitivity [Recovered/Resolved]
  - Crohn^s disease [Recovered/Resolved]
  - Nasopharyngitis [Recovered/Resolved]
  - Body temperature increased [Recovered/Resolved]
